FAERS Safety Report 7761859-3 (Version None)
Quarter: 2011Q3

REPORT INFORMATION
  Report Type: 
  Country: None (occurrence: None)
  Receive Date: 20110920
  Receipt Date: 20110915
  Transmission Date: 20111222
  Serious: Yes (Life-Threatening, Hospitalization)
  Sender: FDA-Public Use
  Company Number: TW-SANOFI-AVENTIS-2011SA051379

PATIENT
  Age: 65 Year
  Sex: Male

DRUGS (3)
  1. ELOXATIN [Suspect]
     Indication: COLORECTAL CANCER
     Route: 042
     Dates: start: 20110422, end: 20110805
  2. FLUOROURACIL [Concomitant]
     Indication: COLORECTAL CANCER
     Route: 042
     Dates: start: 20110422
  3. LEUCOVORIN CALCIUM [Concomitant]
     Indication: COLORECTAL CANCER
     Route: 042
     Dates: start: 20110422

REACTIONS (3)
  - CARDIO-RESPIRATORY ARREST [None]
  - HYPERAMMONAEMIA [None]
  - COMA [None]
